FAERS Safety Report 13295825 (Version 1)
Quarter: 2017Q1

REPORT INFORMATION
  Report Type: Spontaneous
  Country: US (occurrence: US)
  Receive Date: 20170303
  Receipt Date: 20170303
  Transmission Date: 20170428
  Serious: Yes (Hospitalization, Disabling, Other)
  Sender: FDA-Public Use
  Company Number: US-ABBVIE-17P-163-1895589-00

PATIENT
  Sex: Male

DRUGS (1)
  1. ANDROGEL [Suspect]
     Active Substance: TESTOSTERONE
     Indication: ANDROGEN REPLACEMENT THERAPY
     Route: 061
     Dates: start: 20140614, end: 20140927

REACTIONS (9)
  - Asthenia [Unknown]
  - Dysphagia [Unknown]
  - Hemiparesis [Unknown]
  - Encephalopathy [Unknown]
  - Aphasia [Unknown]
  - Disability [Unknown]
  - Coordination abnormal [Unknown]
  - Cerebral haemorrhage [Unknown]
  - Major depression [Unknown]

NARRATIVE: CASE EVENT DATE: 20140927
